FAERS Safety Report 9508980 (Version 1)
Quarter: 2013Q3

REPORT INFORMATION
  Report Type: Spontaneous
  Country: US (occurrence: US)
  Receive Date: 20130909
  Receipt Date: 20130909
  Transmission Date: 20140515
  Serious: No
  Sender: FDA-Public Use
  Company Number: US-BRISTOL-MYERS SQUIBB COMPANY-19056613

PATIENT
  Age: 81 Year
  Sex: Male
  Weight: 71.65 kg

DRUGS (6)
  1. ABILIFY [Suspect]
     Indication: DEPRESSION
     Dosage: LAST DOSE: JUN2013.?THERAPY START DOSE: 2MG.
     Dates: start: 201111
  2. ABILIFY [Suspect]
     Indication: ANXIETY
     Dosage: LAST DOSE: JUN2013.?THERAPY START DOSE: 2MG.
     Dates: start: 201111
  3. REMERON [Concomitant]
  4. RISPERIDONE [Concomitant]
  5. ZOLOFT [Concomitant]
  6. TYLENOL [Concomitant]

REACTIONS (2)
  - Aggression [Unknown]
  - Weight decreased [Unknown]
